FAERS Safety Report 9676499 (Version 3)
Quarter: 2013Q4

REPORT INFORMATION
  Report Type: Report from Study
  Country: ES (occurrence: ES)
  Receive Date: 20131107
  Receipt Date: 20131212
  Transmission Date: 20140711
  Serious: Yes (Hospitalization)
  Sender: FDA-Public Use
  Company Number: ES-ASTRAZENECA-2013SE76199

PATIENT
  Age: 26413 Day
  Sex: Male

DRUGS (7)
  1. AZD6140 [Suspect]
     Indication: CORONARY ARTERY DISEASE
     Route: 048
     Dates: start: 20130227, end: 20131009
  2. ASA [Concomitant]
     Route: 048
  3. AMLODIPIN [Concomitant]
     Indication: HYPERTENSION
     Route: 048
  4. ENALAPRIL [Concomitant]
     Indication: HYPERTENSION
     Route: 048
  5. PANTOPRAZOLE [Concomitant]
     Indication: PROPHYLAXIS AGAINST GASTROINTESTINAL ULCER
     Route: 048
  6. ATORVASTATIN [Concomitant]
     Indication: CARDIOVASCULAR DISORDER
     Route: 048
  7. EMCONCOR [Concomitant]
     Indication: CARDIOVASCULAR DISORDER
     Route: 048

REACTIONS (1)
  - Bronchiectasis [Recovered/Resolved]
